FAERS Safety Report 4985103-5 (Version None)
Quarter: 2006Q1

REPORT INFORMATION
  Report Type: 
  Country: None (occurrence: None)
  Receive Date: 20060303
  Receipt Date: 20020613
  Transmission Date: 20060701
  Serious: Yes (Other)
  Sender: FDA-Public Use
  Company Number: PHEH2002US05513

PATIENT
  Age: 59 Year
  Sex: Female

DRUGS (16)
  1. NEORAL [Suspect]
     Indication: LUNG TRANSPLANT
     Dosage: 100 MG, BID
     Dates: start: 19980101
  2. HYTRIN [Concomitant]
  3. LOZOL [Concomitant]
  4. COZAAR [Concomitant]
  5. ALDOMET [Concomitant]
  6. PREDNISONE TAB [Concomitant]
  7. IMURAN [Concomitant]
  8. LIPITOR [Concomitant]
  9. AXID [Concomitant]
  10. SYNTHROID [Concomitant]
  11. PRANDIN ^KUHN^ (DEFLAZACORT) [Concomitant]
  12. CALCIUM (CALCIUM) [Concomitant]
  13. MULTIVITAMINS (ASCORBIC ACID, ERGOCALCIFEROL, FOLIC ACID, NICOTINAMIDE [Concomitant]
  14. ATROVENT [Concomitant]
  15. ALBUTEROL [Concomitant]
  16. TRIMETOPRIM-SULFA (SULFAMETHOXAZOLE, TRIMETHOPRIM) [Concomitant]

REACTIONS (2)
  - BLOOD CREATININE INCREASED [None]
  - DRUG LEVEL INCREASED [None]
